FAERS Safety Report 4845764-8 (Version None)
Quarter: 2005Q4

REPORT INFORMATION
  Report Type: 
  Country: None (occurrence: None)
  Receive Date: 20051201
  Receipt Date: 20051123
  Transmission Date: 20060501
  Serious: Yes (Life-Threatening)
  Sender: FDA-Public Use
  Company Number: RS005596-J

PATIENT
  Age: 73 Year
  Sex: Male

DRUGS (9)
  1. RABEPRAZOLE SODIUM [Suspect]
     Indication: REFLUX OESOPHAGITIS
     Dosage: 20 MG, 1 IN 1 D, ORAL
     Route: 048
     Dates: start: 20040801, end: 20051028
  2. VERAPAMIL HYDROCHLORIDE [Suspect]
     Dosage: 80 MG, 2 IN 1 D, ORAL
     Route: 048
     Dates: end: 20051028
  3. NOVORAPID (INSULIN ASPART) [Suspect]
  4. ASPIRIN [Suspect]
     Dosage: 100 MG, 1 IN 1 D, ORAL
     Route: 048
     Dates: end: 20051028
  5. DIGOXIN [Suspect]
     Dosage: 0.125 MG, 1 IN 1 D, ORAL
     Route: 048
     Dates: end: 20051028
  6. MUCOSOLVAN (AMBROXOL HYDROCHLORIDE) [Suspect]
     Dosage: 45 MG, 3 IN 1 D, ORAL
     Route: 048
     Dates: end: 20051028
  7. ADONA (AC-17) (CARBAZOCHROME SODIUM SULFONATE) [Suspect]
     Dosage: 90 MG, 3 IN 1 D, ORAL
     Route: 048
     Dates: end: 20051029
  8. TRANSAMIN (TRANEXAMIC ACID) [Suspect]
     Dosage: 750 M, 3 IN 1 D, ORAL
     Route: 048
     Dates: end: 20051028
  9. LEVOFLOXACIN [Suspect]
     Dosage: 300 MG, 3 IN 1 D, ORAL
     Route: 048
     Dates: end: 20051028

REACTIONS (2)
  - HYPOXIA [None]
  - PULMONARY ALVEOLAR HAEMORRHAGE [None]
